FAERS Safety Report 5797150-4 (Version None)
Quarter: 2008Q2

REPORT INFORMATION
  Report Type: 
  Country: None (occurrence: None)
  Receive Date: 20080618
  Receipt Date: 20071010
  Transmission Date: 20081010
  Serious: Yes (Hospitalization)
  Sender: FDA-Public Use
  Company Number: 200717143US

PATIENT
  Age: 77 Year
  Sex: Male

DRUGS (7)
  1. LANTUS [Suspect]
     Indication: TYPE 2 DIABETES MELLITUS
     Dosage: 25 U HS INJ
     Route: 042
     Dates: start: 20070501
  2. METFORMIN HCL [Concomitant]
  3. CLOPIDOGREL (PLAVIX /01220701/) [Concomitant]
  4. WARFARIN SODIUM [Concomitant]
  5. AMIODARONE [Concomitant]
  6. LIPITOR [Concomitant]
  7. LOPRESSOR [Concomitant]

REACTIONS (2)
  - HYPERGLYCAEMIA [None]
  - HYPOGLYCAEMIA [None]
